FAERS Safety Report 17665578 (Version 1)
Quarter: 2020Q2

REPORT INFORMATION
  Report Type: Report from Study
  Country: US (occurrence: US)
  Receive Date: 20200414
  Receipt Date: 20200414
  Transmission Date: 20200713
  Serious: Yes (Other)
  Sender: FDA-Public Use
  Company Number: US-MYLANLABS-2020M1037154

PATIENT
  Age: 70 Year
  Sex: Male
  Weight: 69.4 kg

DRUGS (3)
  1. FENTANYL. [Concomitant]
     Active Substance: FENTANYL
     Indication: PRODUCT USED FOR UNKNOWN INDICATION
     Dosage: 50 MICROGRAM
     Route: 042
  2. KETAMINE [Suspect]
     Active Substance: KETAMINE
     Indication: PAIN
  3. KETAMINE [Suspect]
     Active Substance: KETAMINE
     Indication: SEDATIVE THERAPY
     Dosage: 0.3 MILLIGRAM/KILOGRAM
     Route: 042

REACTIONS (1)
  - Respiratory disorder [Unknown]
